FAERS Safety Report 5977909-0 (Version None)
Quarter: 2008Q4

REPORT INFORMATION
  Report Type: 
  Country: None (occurrence: None)
  Receive Date: 20081203
  Receipt Date: 20081113
  Transmission Date: 20090506
  Serious: No
  Sender: FDA-Public Use
  Company Number: US-B.I. PHARMACEUTICALS,INC./RIDGEFIELD-2008-BP-17214BP

PATIENT
  Sex: Female

DRUGS (3)
  1. ZANTAC [Suspect]
     Indication: HIATUS HERNIA
     Dosage: 150MG
     Route: 048
  2. OMEPRAZOLE [Concomitant]
     Indication: HIATUS HERNIA
     Dates: start: 20040101
  3. ANTIBIOTIC [Concomitant]
     Indication: BRONCHITIS

REACTIONS (1)
  - DRUG INEFFECTIVE [None]
